FAERS Safety Report 6199557-2 (Version None)
Quarter: 2009Q2

REPORT INFORMATION
  Report Type: 
  Country: None (occurrence: None)
  Receive Date: 20090522
  Receipt Date: 20090511
  Transmission Date: 20091009
  Serious: Yes (Other)
  Sender: FDA-Public Use
  Company Number: B0511139A

PATIENT
  Age: 41 Year
  Sex: Male
  Weight: 71 kg

DRUGS (12)
  1. ARRANON [Suspect]
     Dosage: 1500MGM2 PER DAY
     Route: 042
     Dates: start: 20080128, end: 20080222
  2. ONCOVIN [Concomitant]
     Indication: NEOPLASM MALIGNANT
     Route: 042
     Dates: start: 20080114
  3. DIFLUCAN [Concomitant]
     Indication: INFECTION PROPHYLAXIS
     Route: 048
     Dates: start: 20080107, end: 20080228
  4. URSO 250 [Concomitant]
     Indication: PROPHYLAXIS
     Route: 048
     Dates: start: 20080104, end: 20080724
  5. MAGLAX [Concomitant]
     Indication: CONSTIPATION PROPHYLAXIS
     Dates: start: 20080131, end: 20080515
  6. SINGULAIR [Concomitant]
     Indication: ASTHMA
     Route: 048
     Dates: start: 20060306, end: 20080724
  7. THEO-DUR [Concomitant]
     Indication: ASTHMA
     Route: 048
     Dates: start: 20060306, end: 20080724
  8. ZANTAC [Concomitant]
     Dates: start: 20060306, end: 20080228
  9. ALOSITOL [Concomitant]
     Indication: PROPHYLAXIS
     Dates: start: 20060306, end: 20080228
  10. FLUTIDE [Concomitant]
     Indication: ASTHMA
     Dates: start: 20060306, end: 20080724
  11. SEREVENT [Concomitant]
     Indication: ASTHMA
     Dates: start: 20060306, end: 20080724
  12. PREDNISOLONE [Concomitant]

REACTIONS (7)
  - ALANINE AMINOTRANSFERASE INCREASED [None]
  - ASPARTATE AMINOTRANSFERASE INCREASED [None]
  - BLOOD BILIRUBIN INCREASED [None]
  - BLOOD LACTATE DEHYDROGENASE INCREASED [None]
  - EOSINOPHIL COUNT INCREASED [None]
  - HEPATIC FUNCTION ABNORMAL [None]
  - SOMNOLENCE [None]
